FAERS Safety Report 16968546 (Version 1)
Quarter: 2019Q4

REPORT INFORMATION
  Report Type: Spontaneous
  Country: CZ (occurrence: CZ)
  Receive Date: 20191029
  Receipt Date: 20191029
  Transmission Date: 20200122
  Serious: Yes (Hospitalization)
  Sender: FDA-Public Use
  Company Number: CZ-ROCHE-2445835

PATIENT
  Sex: Male

DRUGS (3)
  1. FRAXIPARIN [Concomitant]
     Active Substance: NADROPARIN CALCIUM
     Route: 058
  2. COTELLIC [Suspect]
     Active Substance: COBIMETINIB
     Indication: MALIGNANT MELANOMA
     Dosage: 3 WEEKS IN 28 DAYS CYCLE
     Route: 065
     Dates: start: 20131001
  3. ZELBORAF [Suspect]
     Active Substance: VEMURAFENIB
     Indication: MALIGNANT MELANOMA
     Dosage: 3 WEEKS IN 28 DAYS CYCLE
     Route: 065
     Dates: start: 20131001

REACTIONS (10)
  - Photosensitivity reaction [Unknown]
  - Hypernatraemia [Unknown]
  - Vertigo [Unknown]
  - Dermatitis allergic [Unknown]
  - Aspartate aminotransferase increased [Unknown]
  - Headache [Unknown]
  - Liver function test increased [Unknown]
  - Dermatitis acneiform [Unknown]
  - Blood osmolarity increased [Unknown]
  - Transaminases increased [Unknown]

NARRATIVE: CASE EVENT DATE: 2014
